FAERS Safety Report 16452170 (Version 1)
Quarter: 2019Q2

REPORT INFORMATION
  Report Type: Report from Study
  Country: NO (occurrence: NO)
  Receive Date: 20190619
  Receipt Date: 20190619
  Transmission Date: 20190711
  Serious: Yes (Death)
  Sender: FDA-Public Use
  Company Number: NO-PFIZER INC-2019256795

PATIENT
  Sex: Male

DRUGS (5)
  1. VINCRISTINE SULFATE. [Suspect]
     Active Substance: VINCRISTINE SULFATE
     Indication: TESTICULAR GERM CELL TUMOUR
     Dosage: UNK UNK, CYCLIC
  2. BLEOMYCIN [Suspect]
     Active Substance: BLEOMYCIN SULFATE
     Indication: TESTICULAR GERM CELL TUMOUR
     Dosage: UNK, CYCLIC (CUMULATIVE DOSE 180)
  3. ACTINOMYCIN D [Suspect]
     Active Substance: DACTINOMYCIN
     Indication: TESTICULAR GERM CELL TUMOUR
     Dosage: UNK UNK, CYCLIC
  4. ADRIAMYCIN [Suspect]
     Active Substance: DOXORUBICIN HYDROCHLORIDE
     Indication: TESTICULAR GERM CELL TUMOUR
     Dosage: UNK UNK, CYCLIC
  5. CYCLOPHOSPHAMIDE. [Suspect]
     Active Substance: CYCLOPHOSPHAMIDE
     Indication: TESTICULAR GERM CELL TUMOUR
     Dosage: UNK UNK, CYCLIC

REACTIONS (2)
  - Malignant fibrous histiocytoma [Fatal]
  - Second primary malignancy [Fatal]
